FAERS Safety Report 8201904-4 (Version None)
Quarter: 2012Q1

REPORT INFORMATION
  Report Type: 
  Country: None (occurrence: None)
  Receive Date: 20120312
  Receipt Date: 20120306
  Transmission Date: 20120608
  Serious: Yes (Other)
  Sender: FDA-Public Use
  Company Number: US-BRISTOL-MYERS SQUIBB COMPANY-16412520

PATIENT
  Age: 52 Year
  Sex: Female
  Weight: 99 kg

DRUGS (2)
  1. ORENCIA [Suspect]
     Indication: RHEUMATOID ARTHRITIS
     Dosage: STARTED 4 MONTHS AGO. 1ST WEEK OF EACH MONTH. DUE FOR NEXT INF 28FEB12.
     Route: 042
     Dates: start: 20110101
  2. PREDNISONE TAB [Suspect]

REACTIONS (1)
  - CARPAL TUNNEL SYNDROME [None]
